FAERS Safety Report 9754525 (Version 1)
Quarter: 2013Q4

REPORT INFORMATION
  Report Type: Spontaneous
  Country: US (occurrence: US)
  Receive Date: 20131213
  Receipt Date: 20131213
  Transmission Date: 20140711
  Serious: Yes (Hospitalization)
  Sender: FDA-Public Use
  Company Number: US-UCBSA-105528

PATIENT
  Sex: Male

DRUGS (4)
  1. NEUPRO [Suspect]
  2. ARTANE [Concomitant]
  3. SEROQUEL [Concomitant]
     Dosage: WHOLE 25MG
  4. BENADRYL [Concomitant]

REACTIONS (2)
  - Muscle enzyme increased [Recovering/Resolving]
  - Insomnia [Not Recovered/Not Resolved]
